FAERS Safety Report 24284232 (Version 1)
Quarter: 2024Q3

REPORT INFORMATION
  Report Type: Spontaneous
  Country: FR (occurrence: FR)
  Receive Date: 20240905
  Receipt Date: 20240905
  Transmission Date: 20241017
  Serious: Yes (Other)
  Sender: BAUSCH AND LOMB
  Company Number: None

PATIENT
  Age: 53 Year
  Sex: Female
  Weight: 85 kg

DRUGS (6)
  1. MINOCYCLINE HYDROCHLORIDE [Suspect]
     Active Substance: MINOCYCLINE HYDROCHLORIDE
     Indication: Bronchopneumopathy
     Dosage: 100MG MORNING AND EVENING
     Route: 048
     Dates: start: 20240426, end: 20240512
  2. RIBAVIRIN [Suspect]
     Active Substance: RIBAVIRIN
     Indication: Bronchopneumopathy
     Dosage: 200MG 3X/DAY
     Route: 048
     Dates: start: 20240426, end: 20240506
  3. BACTRIM [Suspect]
     Active Substance: SULFAMETHOXAZOLE\TRIMETHOPRIM
     Indication: Bronchopneumopathy
     Dosage: 1 TABLE IN THE MORNING AND 1 TABLE IN THE EVENING EVERY DAY
     Route: 048
     Dates: start: 20240426, end: 20240512
  4. TACROLIMUS [Suspect]
     Active Substance: TACROLIMUS
     Indication: Prophylaxis against transplant rejection
     Dosage: 5MG IN THE MORNING
     Route: 048
     Dates: start: 20240501, end: 20240503
  5. TACROLIMUS [Suspect]
     Active Substance: TACROLIMUS
     Dosage: 6MG IN THE MORNING
     Route: 048
     Dates: end: 20240430
  6. TACROLIMUS [Suspect]
     Active Substance: TACROLIMUS
     Dosage: 4MG IN THE MORNING
     Route: 048
     Dates: start: 20240506

REACTIONS (2)
  - Acute kidney injury [Recovered/Resolved]
  - Neutropenia [Recovered/Resolved]

NARRATIVE: CASE EVENT DATE: 20240428
